FAERS Safety Report 8124959-4 (Version None)
Quarter: 2012Q1

REPORT INFORMATION
  Report Type: 
  Country: None (occurrence: None)
  Receive Date: 20120209
  Receipt Date: 20120206
  Transmission Date: 20120608
  Serious: No
  Sender: FDA-Public Use
  Company Number: US-BAYER-2012-012941

PATIENT
  Age: 22 Year
  Sex: Female
  Weight: 61 kg

DRUGS (1)
  1. ALEVE (CAPLET) [Suspect]
     Indication: DYSMENORRHOEA
     Dosage: 1 DF, BID
     Route: 048
     Dates: start: 20110601, end: 20111201

REACTIONS (8)
  - SWELLING FACE [None]
  - SCAR [None]
  - PRURITUS [None]
  - DRUG HYPERSENSITIVITY [None]
  - ERYTHEMA [None]
  - LIP SWELLING [None]
  - RASH MACULAR [None]
  - SKIN DISCOLOURATION [None]
